FAERS Safety Report 10973576 (Version 1)
Quarter: 2015Q2

REPORT INFORMATION
  Report Type: Report from Study
  Country: US (occurrence: US)
  Receive Date: 20150401
  Receipt Date: 20150401
  Transmission Date: 20150821
  Serious: Yes (Hospitalization)
  Sender: FDA-Public Use
  Company Number: US-BIOGENIDEC-2015BI040942

PATIENT
  Age: 56 Year
  Sex: Female

DRUGS (1)
  1. TECFIDERA [Suspect]
     Active Substance: DIMETHYL FUMARATE
     Indication: MULTIPLE SCLEROSIS
     Route: 048
     Dates: start: 201408

REACTIONS (8)
  - Road traffic accident [Unknown]
  - Sinusitis [Unknown]
  - Facial pain [Unknown]
  - Flushing [Unknown]
  - Fatigue [Unknown]
  - Headache [Unknown]
  - Feeling hot [Unknown]
  - Chills [Unknown]

NARRATIVE: CASE EVENT DATE: 201408
